FAERS Safety Report 13928915 (Version 2)
Quarter: 2017Q4

REPORT INFORMATION
  Report Type: Spontaneous
  Country: IT (occurrence: IT)
  Receive Date: 20170901
  Receipt Date: 20171010
  Transmission Date: 20180320
  Serious: Yes (Hospitalization)
  Sender: FDA-Public Use
  Company Number: IT-ROCHE-1984925

PATIENT
  Age: 16 Year
  Sex: Female
  Weight: 50 kg

DRUGS (2)
  1. RIVOTRIL [Suspect]
     Active Substance: CLONAZEPAM
     Indication: EPILEPSY
     Dosage: 2 MG TABLETS- 20 TABLETS
     Route: 048
     Dates: start: 20170621, end: 20170621
  2. DEPAKIN [Suspect]
     Active Substance: VALPROATE SODIUM
     Indication: EPILEPSY
     Dosage: 500 MG - 40 TABLETS IN AL/AL BLISTER PACK
     Route: 048
     Dates: start: 20170621, end: 20170621

REACTIONS (4)
  - Hepatitis [Unknown]
  - Intentional self-injury [Unknown]
  - Alanine aminotransferase increased [Unknown]
  - Drug abuse [Unknown]

NARRATIVE: CASE EVENT DATE: 20170621
